FAERS Safety Report 9324657 (Version 1)
Quarter: 2013Q2

REPORT INFORMATION
  Report Type: Spontaneous
  Country: US (occurrence: US)
  Receive Date: 20130603
  Receipt Date: 20130603
  Transmission Date: 20140414
  Serious: Yes (Other)
  Sender: FDA-Public Use
  Company Number: US-GLAXOSMITHKLINE-A1025086A

PATIENT
  Age: 60 Year
  Sex: Male

DRUGS (1)
  1. RYTHMOL IR [Suspect]
     Indication: PRODUCT USED FOR UNKNOWN INDICATION
     Dosage: 225MG UNKNOWN
     Route: 065
     Dates: start: 20100513

REACTIONS (2)
  - Myocardial infarction [Unknown]
  - Asthma [Unknown]
